FAERS Safety Report 21761765 (Version 3)
Quarter: 2024Q4

REPORT INFORMATION
  Report Type: Spontaneous
  Country: US (occurrence: US)
  Receive Date: 20221221
  Receipt Date: 20241011
  Transmission Date: 20250115
  Serious: No
  Sender: NOVARTIS
  Company Number: US-002147023-NVSC2022US295370

PATIENT
  Sex: Female
  Weight: 54.3 kg

DRUGS (4)
  1. LUTATHERA [Suspect]
     Active Substance: LUTETIUM OXODOTREOTIDE LU-177
     Indication: Pancreatic neuroendocrine tumour
     Dosage: 100 MCI Q8 WEEKS (LIQUID)
     Route: 042
     Dates: start: 20220629
  2. LUTATHERA [Suspect]
     Active Substance: LUTETIUM OXODOTREOTIDE LU-177
     Dosage: 100 MCI Q8 WEEKS
     Route: 042
  3. LUTATHERA [Suspect]
     Active Substance: LUTETIUM OXODOTREOTIDE LU-177
     Dosage: 100 MCI Q8 WEEKS
     Route: 042
  4. LUTATHERA [Suspect]
     Active Substance: LUTETIUM OXODOTREOTIDE LU-177
     Dosage: 100 MCI Q8 WEEKS
     Route: 042
     Dates: end: 20230102

REACTIONS (1)
  - Ill-defined disorder [Unknown]
